FAERS Safety Report 18856687 (Version 2)
Quarter: 2021Q1

REPORT INFORMATION
  Report Type: Spontaneous
  Country: US (occurrence: US)
  Receive Date: 20210207
  Receipt Date: 20210326
  Transmission Date: 20210420
  Serious: No
  Sender: FDA-Public Use
  Company Number: US-TAKEDA-2021TUS004870

PATIENT
  Sex: Female
  Weight: 48 kg

DRUGS (16)
  1. ACETAMINOPHEN. [Concomitant]
     Active Substance: ACETAMINOPHEN
  2. NORMAL SALINE [Concomitant]
     Active Substance: SODIUM CHLORIDE
  3. TRAZODONE [Concomitant]
     Active Substance: TRAZODONE HYDROCHLORIDE
  4. PROGESTERONE. [Concomitant]
     Active Substance: PROGESTERONE
  5. LIDOCAINE. [Concomitant]
     Active Substance: LIDOCAINE
  6. TRAMADOL. [Concomitant]
     Active Substance: TRAMADOL
  7. CITALOPRAM [Concomitant]
     Active Substance: CITALOPRAM HYDROBROMIDE
  8. ESTRADIOL. [Concomitant]
     Active Substance: ESTRADIOL
  9. EPINEPHRINE. [Concomitant]
     Active Substance: EPINEPHRINE
  10. BUSPIRONE [Concomitant]
     Active Substance: BUSPIRONE HYDROCHLORIDE
  11. ADVIL [Concomitant]
     Active Substance: IBUPROFEN
     Indication: PRODUCT USED FOR UNKNOWN INDICATION
  12. PROMETRIUM [Concomitant]
     Active Substance: PROGESTERONE
  13. DIPHENHYDRAMINE. [Concomitant]
     Active Substance: DIPHENHYDRAMINE
  14. TESTOSTERONE. [Concomitant]
     Active Substance: TESTOSTERONE
  15. GAMMAGARD LIQUID [Suspect]
     Active Substance: HUMAN IMMUNOGLOBULIN G
     Indication: IMMUNODEFICIENCY COMMON VARIABLE
     Dosage: 20 GRAM, Q3WEEKS
     Route: 042
     Dates: start: 20210116
  16. METAXALONE. [Concomitant]
     Active Substance: METAXALONE

REACTIONS (4)
  - Limb injury [Unknown]
  - Infusion site extravasation [Unknown]
  - Nausea [Unknown]
  - Infusion related reaction [Unknown]
